FAERS Safety Report 8225427-1 (Version None)
Quarter: 2012Q1

REPORT INFORMATION
  Report Type: 
  Country: None (occurrence: None)
  Receive Date: 20120321
  Receipt Date: 20120309
  Transmission Date: 20120608
  Serious: Yes (Hospitalization)
  Sender: FDA-Public Use
  Company Number: US-ELI_LILLY_AND_COMPANY-US201203002954

PATIENT
  Age: 73 Year
  Sex: Male

DRUGS (4)
  1. EFFIENT [Suspect]
     Indication: ACUTE MYOCARDIAL INFARCTION
     Dosage: 60 MG, SINGLE
  2. EFFIENT [Suspect]
     Dosage: UNK, UNKNOWN
  3. INTEGRILIN [Concomitant]
     Dosage: UNK, UNKNOWN
  4. ANGIOMAX [Concomitant]
     Dosage: UNK, UNKNOWN

REACTIONS (1)
  - THROMBOSIS IN DEVICE [None]
